FAERS Safety Report 23462109 (Version 1)
Quarter: 2024Q1

REPORT INFORMATION
  Report Type: Spontaneous
  Country: PT (occurrence: PT)
  Receive Date: 20240131
  Receipt Date: 20240131
  Transmission Date: 20240410
  Serious: Yes (Hospitalization, Other)
  Sender: FDA-Public Use
  Company Number: PT-TEVA-2023-PT-2932772

PATIENT
  Age: 85 Year
  Sex: Female

DRUGS (3)
  1. APIXABAN [Suspect]
     Active Substance: APIXABAN
     Indication: Suicide attempt
     Dosage: 80 TABLETS OF APIXABAN 2.5MG
     Route: 048
  2. DIGOXIN [Suspect]
     Active Substance: DIGOXIN
     Indication: Suicide attempt
     Dosage: 20 TABLETS OF DIGOXIN 0.125MG
     Route: 048
  3. HYDROCHLOROTHIAZIDE\IRBESARTAN [Suspect]
     Active Substance: HYDROCHLOROTHIAZIDE\IRBESARTAN
     Indication: Suicide attempt
     Dosage: 30 TABLETS OF IRBESARTAN 300MG
     Route: 048

REACTIONS (4)
  - Intentional overdose [Unknown]
  - Hypertension [Unknown]
  - Fatigue [Unknown]
  - Bradycardia [Recovered/Resolved]
